FAERS Safety Report 24770124 (Version 1)
Quarter: 2024Q4

REPORT INFORMATION
  Report Type: Spontaneous
  Country: ES (occurrence: ES)
  Receive Date: 20241224
  Receipt Date: 20241224
  Transmission Date: 20250115
  Serious: Yes (Hospitalization, Other)
  Sender: GLAXOSMITHKLINE
  Company Number: None

PATIENT

DRUGS (1)
  1. NUCALA [Suspect]
     Active Substance: MEPOLIZUMAB
     Indication: Hypereosinophilic syndrome
     Dosage: 300 MG, MO (TOTAL)
     Route: 042
     Dates: start: 20231117, end: 20231117

REACTIONS (2)
  - Acquired factor VIII deficiency [Recovered/Resolved]
  - Haemophilia A with anti factor VIII [Recovering/Resolving]

NARRATIVE: CASE EVENT DATE: 20231204
